FAERS Safety Report 9281013 (Version 1)
Quarter: 2013Q2

REPORT INFORMATION
  Report Type: Spontaneous
  Country: US (occurrence: US)
  Receive Date: 20130509
  Receipt Date: 20130509
  Transmission Date: 20140414
  Serious: Yes (Hospitalization)
  Sender: FDA-Public Use
  Company Number: US-GLAXOSMITHKLINE-A1022195A

PATIENT
  Age: 46 Year
  Sex: Female

DRUGS (6)
  1. VOTRIENT [Suspect]
     Indication: LEIOMYOSARCOMA
     Dosage: 200MG PER DAY
     Route: 048
     Dates: start: 20130305, end: 20130311
  2. DILAUDID [Concomitant]
  3. ZOFRAN [Concomitant]
  4. ZANTAC [Concomitant]
  5. LEXAPRO [Concomitant]
  6. ATIVAN [Concomitant]

REACTIONS (2)
  - Haemorrhage [Unknown]
  - Abdominal pain [Unknown]
